FAERS Safety Report 6371180-6 (Version None)
Quarter: 2009Q3

REPORT INFORMATION
  Report Type: 
  Country: None (occurrence: None)
  Receive Date: 20090923
  Receipt Date: 20070712
  Transmission Date: 20100115
  Serious: Yes (Other)
  Sender: FDA-Public Use
  Company Number: US-ASTRAZENECA-2006UW27646

PATIENT
  Age: 36 Year
  Sex: Female
  Weight: 136.1 kg

DRUGS (16)
  1. SEROQUEL [Suspect]
     Indication: HALLUCINATION, AUDITORY
     Route: 048
     Dates: start: 20010101, end: 20050101
  2. SEROQUEL [Suspect]
     Dosage: 25-600MG
     Route: 048
     Dates: start: 20021203
  3. GEODON [Concomitant]
  4. ACETAMINOPHEN [Concomitant]
     Dates: start: 20020610
  5. METRONIDAZOLE [Concomitant]
     Dosage: 250-500 MG
     Dates: start: 20020612
  6. HYDROCHLOROTHIAZIDE [Concomitant]
     Dates: start: 20020618
  7. FUROSEMIDE [Concomitant]
     Dates: start: 20020626
  8. IBUPROFEN [Concomitant]
     Dates: start: 20020628
  9. HYDROCODONE [Concomitant]
     Dosage: 5-500
     Dates: start: 20020702
  10. CLINDAMYCIN HCL [Concomitant]
     Dates: start: 20020702
  11. PREVACID [Concomitant]
     Dates: start: 20020716
  12. RISPERDAL [Concomitant]
     Dates: start: 20020905
  13. CELEXA [Concomitant]
     Dates: start: 20020905
  14. LEXAPRO [Concomitant]
     Dates: start: 20031105
  15. AUGMENTIN [Concomitant]
     Dosage: 875-125
     Dates: start: 20031114
  16. DIPHENHYDRAMINE HCL [Concomitant]
     Dates: start: 20031127

REACTIONS (2)
  - DIABETES MELLITUS [None]
  - DIABETES MELLITUS INADEQUATE CONTROL [None]
